FAERS Safety Report 13561619 (Version 2)
Quarter: 2017Q2

REPORT INFORMATION
  Report Type: Spontaneous
  Country: US (occurrence: US)
  Receive Date: 20170518
  Receipt Date: 20170608
  Transmission Date: 20170830
  Serious: No
  Sender: FDA-Public Use
  Company Number: US-009507513-1705USA005326

PATIENT
  Sex: Female

DRUGS (4)
  1. ACTICLATE [Concomitant]
     Active Substance: DOXYCYCLINE HYCLATE
     Indication: ACNE
     Dosage: 50 MG, UNK
     Route: 048
  2. NEXPLANON [Suspect]
     Active Substance: ETONOGESTREL
     Indication: CONTRACEPTION
     Dosage: 1 DF, UNK
     Route: 059
  3. NOVOLOG [Concomitant]
     Active Substance: INSULIN ASPART
     Indication: DIABETES MELLITUS
  4. TAZORAC [Concomitant]
     Active Substance: TAZAROTENE
     Indication: ACNE
     Route: 061

REACTIONS (4)
  - Implant site swelling [Recovered/Resolved]
  - Implant site hypersensitivity [Recovered/Resolved]
  - Weight decreased [Recovered/Resolved]
  - Implant site bruising [Unknown]
